FAERS Safety Report 9408723 (Version 1)
Quarter: 2013Q3

REPORT INFORMATION
  Report Type: Report from Study
  Country: US (occurrence: US)
  Receive Date: 20130718
  Receipt Date: 20130718
  Transmission Date: 20140515
  Serious: Yes (Hospitalization, Other)
  Sender: FDA-Public Use
  Company Number: US-ABBOTT-13P-163-1117378-00

PATIENT
  Age: 55 Year
  Sex: Female

DRUGS (12)
  1. HUMIRA [Suspect]
     Indication: COLITIS ULCERATIVE
     Dates: start: 201303, end: 201304
  2. HUMIRA [Suspect]
     Dates: start: 20130528, end: 20130528
  3. HUMIRA [Suspect]
     Dates: start: 20130611, end: 20130611
  4. HUMIRA [Suspect]
     Dates: start: 20130706, end: 20130706
  5. PREDNISONE [Concomitant]
     Indication: PRODUCT USED FOR UNKNOWN INDICATION
  6. LIBRAX [Concomitant]
     Indication: COLITIS
     Dosage: WITH EVERY MEAL
  7. MOBIC [Concomitant]
     Indication: PRODUCT USED FOR UNKNOWN INDICATION
  8. PROBIOTIC [Concomitant]
     Indication: PRODUCT USED FOR UNKNOWN INDICATION
  9. PRILOSEC [Concomitant]
     Indication: PRODUCT USED FOR UNKNOWN INDICATION
  10. BACLOFEN [Concomitant]
     Indication: COLITIS
  11. AMBIEN [Concomitant]
     Indication: INSOMNIA
  12. LIPITOR [Concomitant]
     Indication: BLOOD CHOLESTEROL INCREASED

REACTIONS (16)
  - Frequent bowel movements [Unknown]
  - Weight decreased [Unknown]
  - Colitis [Unknown]
  - Pseudomembranous colitis [Unknown]
  - Choking [Recovered/Resolved]
  - Malnutrition [Unknown]
  - Loss of consciousness [Recovered/Resolved]
  - Clostridium difficile infection [Not Recovered/Not Resolved]
  - Diarrhoea [Unknown]
  - Diarrhoea [Unknown]
  - Dyspnoea [Recovered/Resolved]
  - Diarrhoea [Unknown]
  - Pharyngeal oedema [Unknown]
  - Throat irritation [Unknown]
  - Drug dose omission [Recovered/Resolved]
  - Cough [Unknown]
